FAERS Safety Report 7624838-2 (Version None)
Quarter: 2011Q3

REPORT INFORMATION
  Report Type: 
  Country: None (occurrence: None)
  Receive Date: 20110720
  Receipt Date: 20110708
  Transmission Date: 20111222
  Serious: Yes (Hospitalization)
  Sender: FDA-Public Use
  Company Number: GB-GENENTECH-321412

PATIENT
  Sex: Male
  Weight: 95.3 kg

DRUGS (3)
  1. CYCLOPHOSPHAMIDE [Suspect]
     Indication: B-CELL LYMPHOMA
     Dosage: 530 MG, Q21D
     Route: 042
     Dates: start: 20110629, end: 20110701
  2. FLUDARABINE PHOSPHATE [Suspect]
     Indication: B-CELL LYMPHOMA
     Dosage: 50 MG, Q21D
     Route: 042
     Dates: start: 20110629, end: 20110701
  3. RITUXIMAB [Suspect]
     Indication: B-CELL LYMPHOMA
     Dosage: 800 MG, Q21D
     Route: 042
     Dates: start: 20110629, end: 20110629

REACTIONS (3)
  - VOMITING [None]
  - DEHYDRATION [None]
  - NAUSEA [None]
